FAERS Safety Report 10079100 (Version 1)
Quarter: 2014Q2

REPORT INFORMATION
  Report Type: Spontaneous
  Country: US (occurrence: US)
  Receive Date: 20140415
  Receipt Date: 20140415
  Transmission Date: 20141212
  Serious: No
  Sender: FDA-Public Use
  Company Number: PHEH2014US006937

PATIENT
  Sex: 0

DRUGS (2)
  1. TASIGNA [Suspect]
     Dosage: 300 MG, BID
  2. TASIGNA [Suspect]
     Dosage: 400 MG, TWO CAPSULES

REACTIONS (2)
  - Electrocardiogram QT interval abnormal [Unknown]
  - Incorrect dose administered [Unknown]
